FAERS Safety Report 23785472 (Version 1)
Quarter: 2024Q2

REPORT INFORMATION
  Report Type: Report from Study
  Country: AT (occurrence: AT)
  Receive Date: 20240425
  Receipt Date: 20240425
  Transmission Date: 20240716
  Serious: Yes (Other)
  Sender: FDA-Public Use
  Company Number: AT-GILEAD-2024-0670289

PATIENT
  Sex: Male

DRUGS (1)
  1. SACITUZUMAB GOVITECAN-HZIY [Suspect]
     Active Substance: SACITUZUMAB GOVITECAN-HZIY
     Indication: Bladder cancer
     Dosage: DAY 8 OF THE 2ND CYCLE
     Route: 065

REACTIONS (2)
  - Neutropenic sepsis [Unknown]
  - Off label use [Unknown]
